FAERS Safety Report 10486282 (Version 1)
Quarter: 2014Q4

REPORT INFORMATION
  Report Type: Spontaneous
  Country: US (occurrence: CA)
  Receive Date: 20141001
  Receipt Date: 20141001
  Transmission Date: 20150528
  Serious: Yes (Hospitalization)
  Sender: FDA-Public Use
  Company Number: 2014SP005647

PATIENT
  Age: 68 Year
  Sex: Male
  Weight: 99.77 kg

DRUGS (9)
  1. METHOTREXATE [Suspect]
     Active Substance: METHOTREXATE
     Indication: PRODUCT USED FOR UNKNOWN INDICATION
  2. CELEBREX [Concomitant]
     Active Substance: CELECOXIB
  3. ARAVA [Suspect]
     Active Substance: LEFLUNOMIDE
     Indication: PRODUCT USED FOR UNKNOWN INDICATION
  4. RAMIPRIL. [Concomitant]
     Active Substance: RAMIPRIL
  5. HCTZ [Concomitant]
     Active Substance: HYDROCHLOROTHIAZIDE
  6. CRESTOR [Concomitant]
     Active Substance: ROSUVASTATIN CALCIUM
  7. PREDNISONE. [Concomitant]
     Active Substance: PREDNISONE
  8. METHOTREXATE [Suspect]
     Active Substance: METHOTREXATE
     Indication: PRODUCT USED FOR UNKNOWN INDICATION
  9. REMICADE [Suspect]
     Active Substance: INFLIXIMAB
     Route: 042

REACTIONS (2)
  - Intestinal polyp [Unknown]
  - Lung neoplasm malignant [Unknown]
